FAERS Safety Report 8390865-3 (Version None)
Quarter: 2012Q2

REPORT INFORMATION
  Report Type: 
  Country: None (occurrence: None)
  Receive Date: 20120529
  Receipt Date: 20120516
  Transmission Date: 20120825
  Serious: Yes (Other)
  Sender: FDA-Public Use
  Company Number: US-JNJFOC-20120514403

PATIENT
  Sex: Male
  Weight: 86.18 kg

DRUGS (4)
  1. RISPERDAL [Suspect]
     Indication: PSYCHOTIC DISORDER
     Route: 048
     Dates: start: 20070101, end: 20090101
  2. ANXIETY MEDICATION [Concomitant]
     Route: 065
     Dates: start: 20100101
  3. RISPERIDONE [Suspect]
     Indication: PSYCHOTIC DISORDER
     Route: 048
     Dates: start: 20090101
  4. CITALOPRAM [Concomitant]
     Route: 065
     Dates: start: 20100101

REACTIONS (5)
  - WEIGHT INCREASED [None]
  - ABNORMAL LOSS OF WEIGHT [None]
  - EMPHYSEMA [None]
  - FREQUENT BOWEL MOVEMENTS [None]
  - RESPIRATORY DISORDER [None]
